FAERS Safety Report 15413046 (Version 1)
Quarter: 2018Q3

REPORT INFORMATION
  Report Type: Report from Study
  Country: DE (occurrence: DE)
  Receive Date: 20180921
  Receipt Date: 20180921
  Transmission Date: 20181010
  Serious: Yes (Congenital Anomaly, Other)
  Sender: FDA-Public Use
  Company Number: DE-TORRENT-00003123

PATIENT
  Age: 1 Day
  Sex: Male

DRUGS (8)
  1. METFORMIN [Suspect]
     Active Substance: METFORMIN HYDROCHLORIDE
     Indication: TYPE 2 DIABETES MELLITUS
     Dosage: PREGNANCY WEEK 0 TO 6 (+4)
     Route: 064
     Dates: start: 20130310, end: 20130425
  2. METOPROLOL. [Suspect]
     Active Substance: METOPROLOL
     Indication: HYPERTENSION
     Dosage: PREGNANCY WEEK 7(+4) TO 35 (+3)
     Route: 064
     Dates: start: 20130502, end: 20131113
  3. METHYLDOPA. [Suspect]
     Active Substance: METHYLDOPA
     Indication: HYPERTENSION
     Dosage: PREGNANCY WEEK 7(+4) TO 35 (+3)
     Route: 064
     Dates: start: 20130502, end: 20131113
  4. RAMIPRIL. [Suspect]
     Active Substance: RAMIPRIL
     Indication: HYPERTENSION
     Dosage: 10 MG, PREGNANCY WEEK 0 TO 6 (+4)
     Route: 064
     Dates: start: 20130310, end: 20130425
  5. VITAVERLAN [Concomitant]
     Indication: PROPHYLAXIS OF NEURAL TUBE DEFECT
     Dosage: 0.4 [MG/D ]
     Route: 064
  6. XELEVIA [Suspect]
     Active Substance: SITAGLIPTIN PHOSPHATE
     Indication: TYPE 2 DIABETES MELLITUS
     Dosage: PREGNANCY WEEK 0 TO 6 (+4)
     Route: 064
     Dates: start: 20130310, end: 20130425
  7. INSULIN [Concomitant]
     Active Substance: INSULIN NOS
     Indication: PRODUCT USED FOR UNKNOWN INDICATION
     Dosage: EXPOSURE DURATION: 0?35+3 WEEKS
     Route: 064
  8. L?THYROXIN [Suspect]
     Active Substance: LEVOTHYROXINE SODIUM
     Indication: AUTOIMMUNE THYROIDITIS
     Dosage: PREGNANCY WEEK 0 TO 35 (+3)
     Route: 064
     Dates: start: 20130310, end: 20131113

REACTIONS (4)
  - Atrial septal defect [Unknown]
  - Foetal exposure during pregnancy [Recovered/Resolved]
  - Diabetic foetopathy [Recovered/Resolved]
  - Large for dates baby [Recovering/Resolving]

NARRATIVE: CASE EVENT DATE: 20131113
